FAERS Safety Report 4665520-3 (Version None)
Quarter: 2005Q2

REPORT INFORMATION
  Report Type: 
  Country: None (occurrence: None)
  Receive Date: 20050519
  Receipt Date: 20040415
  Transmission Date: 20051028
  Serious: No
  Sender: FDA-Public Use
  Company Number: US-BRISTOL-MYERS SQUIBB COMPANY-12561866

PATIENT
  Age: 79 Year
  Sex: Male

DRUGS (2)
  1. MUTAMYCIN [Suspect]
     Indication: BLADDER CANCER
     Route: 043
     Dates: start: 20040212, end: 20040212
  2. INSULIN [Concomitant]

REACTIONS (4)
  - CHILLS [None]
  - DYSURIA [None]
  - NAUSEA [None]
  - PYREXIA [None]
